FAERS Safety Report 13774109 (Version 1)
Quarter: 2017Q3

REPORT INFORMATION
  Report Type: Report from Study
  Country: ZA (occurrence: ZA)
  Receive Date: 20170721
  Receipt Date: 20170721
  Transmission Date: 20171127
  Serious: Yes (Hospitalization)
  Sender: FDA-Public Use
  Company Number: PHHY2017ZA106529

PATIENT
  Sex: Female

DRUGS (2)
  1. CO-TAREG [Suspect]
     Active Substance: HYDROCHLOROTHIAZIDE\VALSARTAN
     Dosage: (12.5MG HYDROCHLOROTHIAZIDE/160MG VALSARTAN)
     Route: 048
  2. THEOPHYLLINE SANDOZ [Suspect]
     Active Substance: THEOPHYLLINE ANHYDROUS
     Indication: ASTHMA
     Dosage: 200 MG, UNK
     Route: 048

REACTIONS (1)
  - Pneumonia [Recovered/Resolved]
